FAERS Safety Report 13798481 (Version 2)
Quarter: 2019Q1

REPORT INFORMATION
  Report Type: Spontaneous
  Country: NL (occurrence: NL)
  Receive Date: 20170727
  Receipt Date: 20190215
  Transmission Date: 20190417
  Serious: Yes (Other)
  Sender: FDA-Public Use
  Company Number: NL-AUROBINDO-AUR-APL-2013-09509

PATIENT

DRUGS (15)
  1. VENLAFAXINE [Concomitant]
     Active Substance: VENLAFAXINE HYDROCHLORIDE
     Indication: DEPRESSION
  2. PROMETHAZINE [Concomitant]
     Active Substance: PROMETHAZINE\PROMETHAZINE HYDROCHLORIDE
     Indication: DEPRESSION
     Dosage: 25 MG,ONCE A DAY,
     Route: 065
  3. QUETIAPINE AUROBINDO FILM-COATED TABLETS 300MG [Suspect]
     Active Substance: QUETIAPINE
     Indication: PSYCHOTIC DISORDER
     Dosage: 300 MG,TWO TIMES A DAY,
     Route: 065
  4. QUETIAPINE AUROBINDO FILM-COATED TABLETS 300MG [Suspect]
     Active Substance: QUETIAPINE
     Indication: SUICIDAL BEHAVIOUR
  5. QUETIAPINE AUROBINDO FILM-COATED TABLETS 300MG [Suspect]
     Active Substance: QUETIAPINE
     Indication: DEPRESSION
  6. PROMETHAZINE [Concomitant]
     Active Substance: PROMETHAZINE\PROMETHAZINE HYDROCHLORIDE
     Indication: SUICIDAL BEHAVIOUR
  7. TEMAZEPAM. [Concomitant]
     Active Substance: TEMAZEPAM
     Indication: DEPRESSION
     Dosage: 20 MG,ONCE A DAY,
     Route: 065
  8. VENLAFAXINE [Concomitant]
     Active Substance: VENLAFAXINE HYDROCHLORIDE
     Indication: PSYCHOTIC DISORDER
  9. LORAZEPAM. [Concomitant]
     Active Substance: LORAZEPAM
     Indication: SUICIDAL BEHAVIOUR
     Dosage: 1 MG,ONCE A DAY,
     Route: 065
  10. TEMAZEPAM. [Concomitant]
     Active Substance: TEMAZEPAM
     Indication: SUICIDAL BEHAVIOUR
  11. VENLAFAXINE [Concomitant]
     Active Substance: VENLAFAXINE HYDROCHLORIDE
     Indication: SUICIDAL BEHAVIOUR
     Dosage: 225 MG,ONCE A DAY,
     Route: 065
  12. LORAZEPAM. [Concomitant]
     Active Substance: LORAZEPAM
     Indication: PSYCHOTIC DISORDER
  13. LORAZEPAM. [Concomitant]
     Active Substance: LORAZEPAM
     Indication: DEPRESSION
  14. PROMETHAZINE [Concomitant]
     Active Substance: PROMETHAZINE\PROMETHAZINE HYDROCHLORIDE
     Indication: PSYCHOTIC DISORDER
  15. TEMAZEPAM. [Concomitant]
     Active Substance: TEMAZEPAM
     Indication: PSYCHOTIC DISORDER

REACTIONS (8)
  - Secondary adrenocortical insufficiency [Recovered/Resolved]
  - Cortisol decreased [Recovered/Resolved]
  - Asthenia [Recovered/Resolved]
  - Adrenal insufficiency [Recovered/Resolved]
  - Fatigue [Recovered/Resolved]
  - Hypothyroidism [Recovered/Resolved]
  - Feeling cold [Recovered/Resolved]
  - Weight increased [Recovered/Resolved]
